FAERS Safety Report 4336029-1 (Version None)
Quarter: 2004Q2

REPORT INFORMATION
  Report Type: 
  Country: None (occurrence: None)
  Receive Date: 20040406
  Receipt Date: 20040324
  Transmission Date: 20050107
  Serious: Yes (Hospitalization)
  Sender: FDA-Public Use
  Company Number: 2004206113FR

PATIENT
  Age: 15 Year
  Sex: Male

DRUGS (2)
  1. GENOTROPIN [Suspect]
     Indication: HYPOPITUITARISM
     Dosage: 14.4 MB/WEEK
     Route: 058
     Dates: start: 19990129, end: 20040306
  2. RANITIDINE [Concomitant]

REACTIONS (5)
  - GASTROENTERITIS [None]
  - HYPERTENSION [None]
  - ORTHOSTATIC HYPOTENSION [None]
  - PYREXIA [None]
  - TIBIA FRACTURE [None]
